FAERS Safety Report 9206069 (Version 1)
Quarter: 2013Q1

REPORT INFORMATION
  Report Type: Spontaneous
  Country: US (occurrence: None)
  Receive Date: 20120709
  Receipt Date: 20120709
  Transmission Date: 20140127
  Serious: Yes (Hospitalization)
  Sender: FDA-Public Use
  Company Number: PHHY2010US51961

PATIENT
  Age: 63 Year
  Sex: Female

DRUGS (18)
  1. GLEEVEC (IMATINIB) UNKNOWN [Suspect]
     Indication: CHRONIC MYELOID LEUKAEMIA
     Dates: start: 201006
  2. GLYBURIDE (GLIBENCLAMIDE) [Concomitant]
  3. METFORMIN (METFORMIN) [Concomitant]
  4. LISINOPRIL (LISINOPRIL) [Concomitant]
  5. HYDROCHLOROTHIAZIDE (HYDROCHLOROTHIAZIDE) [Concomitant]
  6. OMEPRAZOLE (OMEPRAZOLE) [Concomitant]
  7. DIOVAN (VALSARTAN) [Concomitant]
  8. POTASSIUM (POTASSIUM) [Concomitant]
  9. BYSTOLIC (NEBIVOLOL HYDROCHLORIDE) [Concomitant]
  10. ASPIRIN (ACETYLSALICYLIC ACID) [Concomitant]
  11. CEFTIN (CEFUROXIME AXETIL) [Concomitant]
  12. CALCIUM WITH VITAMIN D (CALCIUM PHOSPHATE, CALCIUM SODIUM LACTATE, ERGOCALCIFEROL) [Concomitant]
  13. ZYRTEC (CETIRIZINE HYDROCHLORIDE) [Concomitant]
  14. AVEENO ANTI-ITCH /CAN/CALAMINE, PRAMOCAINE HYDROCHLORIDE) CREAM [Concomitant]
  15. LASIX (FUROSEMIDE) [Concomitant]
  16. ACTOS (PIOGLITAZONE, PIOGLITAZONE HYDROCHLORIDE) [Concomitant]
  17. ULORIC (FEBUXOSTAT) [Concomitant]
  18. ALLOPURINAL (ALLOPURINAL) [Concomitant]

REACTIONS (11)
  - Renal failure acute [None]
  - Rash [None]
  - Dehydration [None]
  - Skin exfoliation [None]
  - Diarrhoea [None]
  - Oedema [None]
  - Leukocytosis [None]
  - Chills [None]
  - Asthenia [None]
  - Nausea [None]
  - Swelling [None]
